FAERS Safety Report 5597753-6 (Version None)
Quarter: 2007Q4

REPORT INFORMATION
  Report Type: 
  Country: None (occurrence: None)
  Receive Date: 20071221
  Receipt Date: 20070823
  Transmission Date: 20080405
  Serious: No
  Sender: FDA-Public Use
  Company Number: US-CVT-070153

PATIENT
  Age: 62 Year
  Sex: Female

DRUGS (8)
  1. RANEXA [Suspect]
     Indication: ANGINA PECTORIS
     Dosage: 500 MG, BID, ORAL
     Route: 048
     Dates: start: 20070525, end: 20070820
  2. ATENOLOL [Concomitant]
  3. MAVIK [Concomitant]
  4. MOBIC [Concomitant]
  5. MAXZIDE [Concomitant]
  6. ZETIA [Concomitant]
  7. LIPITOR [Concomitant]
  8. MULTIVITAMIN/00831701/ (VITAMINS NOS) [Concomitant]

REACTIONS (6)
  - DYSPNOEA [None]
  - HYPOAESTHESIA [None]
  - JOINT SWELLING [None]
  - OEDEMA PERIPHERAL [None]
  - PARAESTHESIA [None]
  - VISION BLURRED [None]
